FAERS Safety Report 16837917 (Version 2)
Quarter: 2019Q4

REPORT INFORMATION
  Report Type: Spontaneous
  Country: IT (occurrence: IT)
  Receive Date: 20190923
  Receipt Date: 20191011
  Transmission Date: 20200122
  Serious: Yes (Other)
  Sender: FDA-Public Use
  Company Number: IT-TEVA-2019-IT-1110400

PATIENT
  Age: 49 Year
  Sex: Male
  Weight: 62 kg

DRUGS (3)
  1. CISPLATINO TEVA ITALIA 0,5 MG/ML CONCENTRATO PER SOLUZIONE PER INFUSIO [Suspect]
     Active Substance: CISPLATIN
     Indication: OSTEOSARCOMA
     Dosage: 33 MG
     Route: 042
     Dates: start: 20190812, end: 20190814
  2. ADRIBLASTINA 200 MG/100 ML SOLUZIONE INIETTABILE PER USO ENDOVENOSO [Suspect]
     Active Substance: DOXORUBICIN HYDROCHLORIDE
     Indication: OSTEOSARCOMA
     Dosage: 25 MG
     Route: 042
     Dates: start: 20190812, end: 20190814
  3. ACCOFIL 30 MU/0.5 ML SOLUTION FOR INJECTION OR INFUSION IN PRE-FILLED [Concomitant]
     Indication: PROPHYLAXIS
     Route: 058
     Dates: start: 20190816, end: 20190821

REACTIONS (2)
  - Stomatitis [Unknown]
  - Neutropenia [Unknown]

NARRATIVE: CASE EVENT DATE: 20190822
